FAERS Safety Report 7353932-9 (Version None)
Quarter: 2011Q1

REPORT INFORMATION
  Report Type: 
  Country: None (occurrence: None)
  Receive Date: 20110315
  Receipt Date: 20110301
  Transmission Date: 20110831
  Serious: Yes (Other)
  Sender: FDA-Public Use
  Company Number: PHHY2011NL16519

PATIENT
  Sex: Female

DRUGS (2)
  1. ACLASTA [Suspect]
     Dosage: 5MG/100ML INFUSION
     Route: 042
     Dates: start: 20100305
  2. ACLASTA [Suspect]
     Dosage: 5MG/100ML INFUSION
     Dates: start: 20110301

REACTIONS (2)
  - OSTEOPOROSIS [None]
  - PAIN IN JAW [None]
